FAERS Safety Report 6463581-2 (Version None)
Quarter: 2009Q4

REPORT INFORMATION
  Report Type: 
  Country: None (occurrence: None)
  Receive Date: 20091201
  Receipt Date: 20091119
  Transmission Date: 20100525
  Serious: Yes (Hospitalization, Other)
  Sender: FDA-Public Use
  Company Number: PRIUSA2000014054

PATIENT
  Age: 73 Year
  Sex: Female

DRUGS (8)
  1. REMICADE [Suspect]
     Route: 041
     Dates: start: 20000308
  2. REMICADE [Suspect]
     Route: 041
     Dates: start: 20000308
  3. REMICADE [Suspect]
     Route: 041
     Dates: start: 20000308
  4. REMICADE [Suspect]
     Route: 041
     Dates: start: 20000308
  5. REMICADE [Suspect]
     Indication: RHEUMATOID ARTHRITIS
     Route: 041
     Dates: start: 20000308
  6. METHOTREXATE [Suspect]
     Indication: RHEUMATOID ARTHRITIS
  7. ETIDRONATE DISODIUM [Concomitant]
  8. PREDNISONE [Concomitant]

REACTIONS (10)
  - CONDITION AGGRAVATED [None]
  - GAMMOPATHY [None]
  - INJURY [None]
  - JOINT INJURY [None]
  - NEOPLASM [None]
  - PLASMACYTOSIS [None]
  - RESPIRATORY FAILURE [None]
  - RESPIRATORY TRACT INFECTION [None]
  - RHEUMATOID ARTHRITIS [None]
  - SINUSITIS [None]
